FAERS Safety Report 9749044 (Version 1)
Quarter: 2013Q4

REPORT INFORMATION
  Report Type: Spontaneous
  Country: US (occurrence: US)
  Receive Date: 20131212
  Receipt Date: 20131212
  Transmission Date: 20140711
  Serious: No
  Sender: FDA-Public Use
  Company Number: US-INCYTE CORPORATION-2013IN002283

PATIENT
  Sex: Female

DRUGS (4)
  1. JAKAFI [Suspect]
     Indication: MYELOFIBROSIS
     Dosage: 5 MG, TID
     Route: 048
     Dates: start: 201304
  2. CARDIA [Concomitant]
  3. ASPIRIN [Concomitant]
  4. SYNTHROID [Concomitant]

REACTIONS (2)
  - Abdominal distension [Not Recovered/Not Resolved]
  - Weight decreased [Unknown]
